FAERS Safety Report 13913940 (Version 1)
Quarter: 2017Q3

REPORT INFORMATION
  Report Type: Spontaneous
  Country: US (occurrence: US)
  Receive Date: 20170828
  Receipt Date: 20170828
  Transmission Date: 20171127
  Serious: No
  Sender: FDA-Public Use
  Company Number: US-ROCHE-1140220

PATIENT
  Sex: Female
  Weight: 68.4 kg

DRUGS (9)
  1. NUTROPIN AQ [Suspect]
     Active Substance: SOMATROPIN
     Route: 065
  2. DDAVP [Concomitant]
     Active Substance: DESMOPRESSIN ACETATE
  3. NUTROPIN AQ [Suspect]
     Active Substance: SOMATROPIN
     Route: 065
     Dates: start: 199912
  4. ALLEGRA [Concomitant]
     Active Substance: FEXOFENADINE HYDROCHLORIDE
  5. ALBUTEROL. [Concomitant]
     Active Substance: ALBUTEROL
  6. NUTROPIN AQ [Suspect]
     Active Substance: SOMATROPIN
     Indication: HYPOTHALAMO-PITUITARY DISORDER
     Route: 065
  7. VANCENASE INHALER [Concomitant]
  8. RITALIN [Concomitant]
     Active Substance: METHYLPHENIDATE HYDROCHLORIDE
  9. ATENOLOL. [Concomitant]
     Active Substance: ATENOLOL

REACTIONS (5)
  - Fatigue [Unknown]
  - Decreased appetite [Unknown]
  - Lethargy [Not Recovered/Not Resolved]
  - Decreased interest [Unknown]
  - Headache [Unknown]
